FAERS Safety Report 14568984 (Version 1)
Quarter: 2018Q1

REPORT INFORMATION
  Report Type: Report from Study
  Country: GB (occurrence: GB)
  Receive Date: 20180223
  Receipt Date: 20180223
  Transmission Date: 20180509
  Serious: Yes (Hospitalization)
  Sender: FDA-Public Use
  Company Number: GB-PFIZER INC-2017513310

PATIENT
  Age: 53 Year
  Sex: Female
  Weight: 74.7 kg

DRUGS (10)
  1. DIPROBASE /01132701/ [Concomitant]
     Indication: RASH
     Dosage: UNK G, CREAM 3X/DAY
     Route: 061
     Dates: start: 20171127, end: 20171205
  2. PACLITAXEL. [Suspect]
     Active Substance: PACLITAXEL
     Indication: OVARIAN CANCER
     Dosage: EVERY 3 WEEKS
     Route: 042
     Dates: start: 20171117
  3. AVELUMAB [Suspect]
     Active Substance: AVELUMAB
     Indication: OVARIAN CANCER
     Dosage: EVERY 3 WEEKS
     Route: 042
     Dates: start: 20171117
  4. DOMPERIDONE [Concomitant]
     Active Substance: DOMPERIDONE
     Indication: PROPHYLAXIS OF NAUSEA AND VOMITING
     Dosage: 10 MG, 3X/DAY
     Route: 048
     Dates: start: 20171117
  5. CHLORPHENAMINE [Concomitant]
     Active Substance: CHLORPHENIRAMINE MALEATE
     Indication: RASH
     Dosage: 4 MG, 3X/DAY
     Route: 048
     Dates: start: 20171127, end: 20171205
  6. CARBOPLATIN. [Suspect]
     Active Substance: CARBOPLATIN
     Indication: OVARIAN CANCER
     Dosage: EVERY 3 WEEKS
     Route: 042
     Dates: start: 20171117
  7. PARACETAMOL [Concomitant]
     Active Substance: ACETAMINOPHEN
     Indication: ABDOMINAL PAIN
     Dosage: 1000 MG, 4X/DAY
     Route: 048
     Dates: start: 20171017
  8. SANDO K /00031402/ [Concomitant]
     Indication: ELECTROLYTE SUBSTITUTION THERAPY
     Dosage: 600 MG, 1X/DAY
     Route: 048
     Dates: start: 20171107, end: 20171230
  9. DEXAMETHASONE. [Concomitant]
     Active Substance: DEXAMETHASONE
     Indication: PROPHYLAXIS OF NAUSEA AND VOMITING
     Dosage: 2 MG, 2X/DAY
     Route: 048
     Dates: start: 20171119, end: 20171121
  10. BETNOVAT /00008503/ [Concomitant]
     Indication: RASH
     Dosage: UNK %, CREAM 3X/DAY
     Route: 061
     Dates: start: 20171127, end: 20171205

REACTIONS (1)
  - Pulmonary embolism [Recovered/Resolved]

NARRATIVE: CASE EVENT DATE: 20171127
